FAERS Safety Report 10665956 (Version 8)
Quarter: 2015Q3

REPORT INFORMATION
  Report Type: Report from Study
  Country: US (occurrence: US)
  Receive Date: 20141219
  Receipt Date: 20150810
  Transmission Date: 20151125
  Serious: Yes (Hospitalization)
  Sender: FDA-Public Use
  Company Number: US-MERCK-1412USA008146

PATIENT
  Age: 46 Year
  Sex: Male
  Weight: 99.1 kg

DRUGS (16)
  1. HYDROCORTISONE (+) LIDOCAINE [Concomitant]
     Indication: PAIN
     Dosage: 1 APPLICATION DAILY, FREQUENCY: OTHER
     Route: 061
     Dates: start: 20140805
  2. PROCHLORPERAZINE MALEATE. [Concomitant]
     Active Substance: PROCHLORPERAZINE MALEATE
     Indication: NAUSEA
     Dosage: DAILY DOSE 10 MG
     Route: 048
     Dates: start: 20141017
  3. PEGINTERFERON ALFA-2B [Suspect]
     Active Substance: PEGINTERFERON ALFA-2B
     Dosage: UNK, QW
     Route: 058
     Dates: start: 20141127, end: 20141204
  4. PEMBROLIZUMAB. [Suspect]
     Active Substance: PEMBROLIZUMAB
     Dosage: 2 MG/KG, Q3W
     Route: 042
     Dates: start: 20141126, end: 20141126
  5. CHOLESTYRAMINE RESIN [Concomitant]
     Active Substance: CHOLESTYRAMINE
     Indication: ROUTINE HEALTH MAINTENANCE
     Dosage: 4 G, QD
     Route: 048
     Dates: start: 20140123
  6. PROBIOTICS (UNSPECIFIED) [Concomitant]
     Active Substance: PROBIOTICS NOS
     Indication: PRODUCT USED FOR UNKNOWN INDICATION
     Dosage: UNK
     Route: 048
     Dates: start: 20140415
  7. PEGINTERFERON ALFA-2B [Suspect]
     Active Substance: PEGINTERFERON ALFA-2B
     Dosage: UNK, QW
     Route: 058
     Dates: start: 20141120, end: 20141120
  8. TRAMADOL HYDROCHLORIDE. [Concomitant]
     Active Substance: TRAMADOL HYDROCHLORIDE
     Indication: PAIN
     Dosage: 50 MG, QID
     Route: 048
     Dates: start: 20140429
  9. IMODIUM [Concomitant]
     Active Substance: LOPERAMIDE HYDROCHLORIDE
     Indication: DIARRHOEA
     Dosage: UNK UNK, TID
     Route: 048
     Dates: start: 20141106
  10. LIDOCAINE. [Concomitant]
     Active Substance: LIDOCAINE
     Indication: PAIN
     Dosage: 1 PATCH, QD
     Route: 062
     Dates: start: 20141106, end: 20141113
  11. PEMBROLIZUMAB. [Suspect]
     Active Substance: PEMBROLIZUMAB
     Indication: RENAL CELL CARCINOMA
     Dosage: 2 MG/KG, Q3W
     Route: 042
     Dates: start: 20141016, end: 20141106
  12. PEGINTERFERON ALFA-2B [Suspect]
     Active Substance: PEGINTERFERON ALFA-2B
     Indication: RENAL CELL CARCINOMA
     Dosage: UNK, QW
     Route: 058
     Dates: start: 20141016, end: 20141113
  13. LOSARTAN. [Concomitant]
     Active Substance: LOSARTAN
     Indication: HYPERTENSION
     Dosage: 25 MG, QD
     Route: 048
     Dates: start: 20140415, end: 20141211
  14. LEVOTHYROXINE SODIUM. [Concomitant]
     Active Substance: LEVOTHYROXINE SODIUM
     Indication: HORMONE REPLACEMENT THERAPY
     Dosage: 25 UG/H, QD, STRENGTH: 25 UG/H
     Route: 048
     Dates: start: 20140610
  15. FLONASE [Concomitant]
     Active Substance: FLUTICASONE PROPIONATE
     Indication: NASAL CONGESTION
     Dosage: 200 UG/H, QD, FOMULATIOM:INHALANT
     Route: 045
     Dates: start: 20141002
  16. COLACE [Concomitant]
     Active Substance: DOCUSATE SODIUM
     Indication: CONSTIPATION
     Dosage: 100 MG, QD
     Route: 048
     Dates: start: 20141120

REACTIONS (1)
  - Pneumonitis [Recovering/Resolving]

NARRATIVE: CASE EVENT DATE: 20141126
